FAERS Safety Report 5220503-X (Version None)
Quarter: 2007Q1

REPORT INFORMATION
  Report Type: 
  Country: None (occurrence: None)
  Receive Date: 20070125
  Receipt Date: 20070125
  Transmission Date: 20070707
  Serious: Yes (Hospitalization)
  Sender: FDA-Public Use
  Company Number: None

PATIENT
  Sex: Female

DRUGS (9)
  1. INSULIN [Suspect]
     Indication: DIABETES MELLITUS
     Dosage: 25 UNITS IN AM 10 UNITS IN PM PRIOR TO ADMISSION
  2. METOPROLOL TARTRATE [Concomitant]
  3. ALTACE [Concomitant]
  4. LIPITOR [Concomitant]
  5. ACTOS [Concomitant]
  6. PLAVIX [Concomitant]
  7. PRIMIDONE [Concomitant]
  8. NORVASC [Concomitant]
  9. CLONIDINE [Concomitant]

REACTIONS (1)
  - MENTAL STATUS CHANGES [None]
